FAERS Safety Report 21925456 (Version 1)
Quarter: 2023Q1

REPORT INFORMATION
  Report Type: Spontaneous
  Country: US (occurrence: US)
  Receive Date: 20230130
  Receipt Date: 20230130
  Transmission Date: 20230418
  Serious: Yes (Death)
  Sender: FDA-Public Use
  Company Number: US-BAYER-2023P005207

PATIENT
  Age: 81 Year
  Sex: Male

DRUGS (1)
  1. XARELTO [Suspect]
     Active Substance: RIVAROXABAN
     Indication: Atrial fibrillation
     Route: 048

REACTIONS (6)
  - Subcapsular renal haematoma [Fatal]
  - Retroperitoneal haematoma [Fatal]
  - Acute kidney injury [Fatal]
  - Intestinal ischaemia [Fatal]
  - Lactic acidosis [Fatal]
  - Tumour haemorrhage [Fatal]
